FAERS Safety Report 4998364-3 (Version None)
Quarter: 2006Q2

REPORT INFORMATION
  Report Type: 
  Country: None (occurrence: None)
  Receive Date: 20060508
  Receipt Date: 20060424
  Transmission Date: 20061013
  Serious: Yes (Disabling)
  Sender: FDA-Public Use
  Company Number: 2006057308

PATIENT
  Sex: Female
  Weight: 2.6 kg

DRUGS (3)
  1. VIRACEPT [Suspect]
     Indication: HIV INFECTION
     Dosage: UNKNOWN
     Route: 065
  2. COMBIVIR [Suspect]
     Indication: HIV INFECTION
     Dosage: UNKNOWN
     Route: 065
  3. RETROVIR [Suspect]
     Indication: HIV INFECTION
     Dosage: 200MG/20 ML, INTRAVENOUS
     Route: 042
     Dates: start: 20030114, end: 20030114

REACTIONS (9)
  - CAESAREAN SECTION [None]
  - CONVULSION [None]
  - DRUG EXPOSURE DURING PREGNANCY [None]
  - EYE MOVEMENT DISORDER [None]
  - HYPERTONIA [None]
  - NEURODEVELOPMENTAL DISORDER [None]
  - NUCLEAR MAGNETIC RESONANCE IMAGING BRAIN ABNORMAL [None]
  - RETINOGRAM ABNORMAL [None]
  - VISUAL DISTURBANCE [None]
